FAERS Safety Report 6835549-5 (Version None)
Quarter: 2010Q3

REPORT INFORMATION
  Report Type: 
  Country: None (occurrence: None)
  Receive Date: 20100713
  Receipt Date: 20100707
  Transmission Date: 20110219
  Serious: Yes (Other)
  Sender: FDA-Public Use
  Company Number: IT-BRISTOL-MYERS SQUIBB COMPANY-15182637

PATIENT
  Age: 61 Year
  Sex: Female

DRUGS (4)
  1. COUMADIN [Suspect]
     Indication: ATRIAL FIBRILLATION
     Dosage: INTERRUPTED ON :17JUN2010
     Dates: start: 20071102
  2. DIBASE [Concomitant]
     Indication: OSTEOPOROSIS
     Dosage: DIBASE 10.000 I.U./ML ORAL DROPS SOLUTION 1 DF: = 30 DROPS VIA ORAL
     Route: 048
     Dates: start: 20100507, end: 20100617
  3. LASIX [Concomitant]
     Indication: OEDEMA PERIPHERAL
     Dosage: TABS
     Route: 048
     Dates: start: 20100507, end: 20100617
  4. AZATHIOPRINE [Concomitant]
     Indication: SCLERODERMA
     Dosage: TABS
     Route: 048
     Dates: start: 20100507, end: 20100617

REACTIONS (4)
  - EPISTAXIS [None]
  - GASTROENTERITIS [None]
  - INTERNATIONAL NORMALISED RATIO INCREASED [None]
  - RECTAL HAEMORRHAGE [None]
